FAERS Safety Report 10443200 (Version 1)
Quarter: 2014Q3

REPORT INFORMATION
  Report Type: Spontaneous
  Country: DE (occurrence: DE)
  Receive Date: 20140909
  Receipt Date: 20140909
  Transmission Date: 20150326
  Serious: Yes (Other)
  Sender: FDA-Public Use
  Company Number: DE-ABBVIE-14P-062-1281902-00

PATIENT
  Age: 40 Year
  Sex: Female

DRUGS (1)
  1. VALPROATE SODIUM. [Suspect]
     Active Substance: VALPROATE SODIUM
     Indication: PRODUCT USED FOR UNKNOWN INDICATION
     Route: 048
     Dates: start: 1984

REACTIONS (1)
  - Necrobiosis lipoidica diabeticorum [Not Recovered/Not Resolved]
